FAERS Safety Report 17413015 (Version 1)
Quarter: 2020Q1

REPORT INFORMATION
  Report Type: Spontaneous
  Country: US (occurrence: US)
  Receive Date: 20200213
  Receipt Date: 20200213
  Transmission Date: 20200409
  Serious: No
  Sender: FDA-Public Use
  Company Number: US-AMGEN-USASP2020022308

PATIENT
  Sex: Male

DRUGS (8)
  1. METRONIDAZOLE. [Concomitant]
     Active Substance: METRONIDAZOLE
     Dosage: 500 MILLIGRAM
  2. OMEPRAZOLE. [Concomitant]
     Active Substance: OMEPRAZOLE
     Dosage: 20 MILLIGRAM
  3. SIMVASTATIN. [Concomitant]
     Active Substance: SIMVASTATIN
     Dosage: 10 MILLIGRAM
  4. CLINDAMYCIN. [Concomitant]
     Active Substance: CLINDAMYCIN
     Dosage: 150 MILLIGRAM
  5. ENALAPRIL [Concomitant]
     Active Substance: ENALAPRIL
     Dosage: 5 MILLIGRAM
  6. REPATHA [Suspect]
     Active Substance: EVOLOCUMAB
     Indication: ACUTE MYOCARDIAL INFARCTION
     Dosage: 140 MILLIGRAM, Q2WK
     Route: 058
  7. HYDROCODONE [Concomitant]
     Active Substance: HYDROCODONE
     Dosage: 325 MILLIGRAM, TAB 5-325 MG
  8. METOPROLOL. [Concomitant]
     Active Substance: METOPROLOL
     Dosage: 25 MILLIGRAM, S TB2

REACTIONS (1)
  - Injection site pain [Unknown]
